FAERS Safety Report 6747447-6 (Version None)
Quarter: 2010Q2

REPORT INFORMATION
  Report Type: 
  Country: None (occurrence: None)
  Receive Date: 20100528
  Receipt Date: 20100520
  Transmission Date: 20101027
  Serious: Yes (Other)
  Sender: FDA-Public Use
  Company Number: NO-ABBOTT-10P-122-0646080-00

PATIENT
  Sex: Female

DRUGS (4)
  1. HUMIRA [Suspect]
     Indication: ANKYLOSING SPONDYLITIS
     Route: 042
     Dates: start: 20091201, end: 20100322
  2. PARACET [Concomitant]
     Indication: ANKYLOSING SPONDYLITIS
     Dosage: 1000 MG, DAILY
     Route: 048
  3. SOMAC [Concomitant]
     Indication: OESOPHAGITIS
     Dosage: 20 MG, DAILY
     Route: 048
  4. BRUFEN RETARD [Concomitant]
     Indication: ANKYLOSING SPONDYLITIS
     Route: 048

REACTIONS (1)
  - OPTIC NEURITIS [None]
